FAERS Safety Report 10267120 (Version 1)
Quarter: 2014Q2

REPORT INFORMATION
  Report Type: Spontaneous
  Country: US (occurrence: None)
  Receive Date: 20140625
  Receipt Date: 20140625
  Transmission Date: 20141212
  Serious: Yes (Other)
  Sender: FDA-Public Use
  Company Number: SYM-2014-22339

PATIENT
  Age: 37 Year
  Sex: Female

DRUGS (4)
  1. XENAZINE [Suspect]
     Indication: HUNTINGTON^S DISEASE
     Route: 048
     Dates: start: 20140328
  2. WELLBUTRIN (BUPROPION HYDROCHLORIDE) (BUPROPION HYDROCHLORIDE) [Concomitant]
  3. CELEXA (CITALOPRAM HYDROBROMIDE) (CITALOPRAM HYDROBROMIDE) [Concomitant]
  4. TOPROL (METOPROLOL SUCCINATE) (METOPROLOL SUCCINATE) [Concomitant]

REACTIONS (1)
  - Extrasystoles [None]
